FAERS Safety Report 8650520 (Version 2)
Quarter: 2016Q1

REPORT INFORMATION
  Report Type: Spontaneous
  Country: DE (occurrence: DE)
  Receive Date: 20120705
  Receipt Date: 20160123
  Transmission Date: 20160526
  Serious: Yes (Other)
  Sender: FDA-Public Use
  Company Number: DE-BRISTOL-MYERS SQUIBB COMPANY-16738593

PATIENT
  Sex: Male
  Weight: 3.43 kg

DRUGS (1)
  1. ABILIFY [Suspect]
     Active Substance: ARIPIPRAZOLE
     Indication: PRODUCT USED FOR UNKNOWN INDICATION
     Dosage: 15 MG, QD
     Route: 064

REACTIONS (3)
  - Exposure during breast feeding [Unknown]
  - Beta haemolytic streptococcal infection [Recovering/Resolving]
  - Foetal exposure during pregnancy [Recovered/Resolved]
